FAERS Safety Report 10667613 (Version 4)
Quarter: 2015Q1

REPORT INFORMATION
  Report Type: Report from Study
  Country: FR (occurrence: FR)
  Receive Date: 20141222
  Receipt Date: 20150330
  Transmission Date: 20150720
  Serious: Yes (Death, Hospitalization, Other)
  Sender: FDA-Public Use
  Company Number: FR-JNJFOC-20140613410

PATIENT
  Age: 52 Year
  Sex: Male
  Weight: 84 kg

DRUGS (39)
  1. SALBUTAMOL [Concomitant]
     Active Substance: ALBUTEROL
     Dates: start: 20140930
  2. LASIX [Concomitant]
     Active Substance: FUROSEMIDE
     Dates: start: 20140928, end: 20140928
  3. ALPRAZOLAM. [Concomitant]
     Active Substance: ALPRAZOLAM
     Dates: start: 20140919
  4. SERETIDE [Concomitant]
     Active Substance: FLUTICASONE FUROATE\SALMETEROL XINAFOATE
     Dates: start: 20140325
  5. IBRUTINIB [Suspect]
     Active Substance: IBRUTINIB
     Indication: CHRONIC LYMPHOCYTIC LEUKAEMIA
     Route: 048
     Dates: start: 20140922
  6. IBRUTINIB [Suspect]
     Active Substance: IBRUTINIB
     Indication: CHRONIC LYMPHOCYTIC LEUKAEMIA
     Route: 048
     Dates: start: 20140325, end: 20141104
  7. LEVOCETIRIZINE [Concomitant]
     Active Substance: LEVOCETIRIZINE
     Dates: start: 20140309
  8. ANTI-VIRAL DRUG [Concomitant]
     Indication: PROPHYLAXIS
  9. ALPRAZOLAM. [Concomitant]
     Active Substance: ALPRAZOLAM
     Dates: start: 20140919, end: 20140920
  10. DIFFU-K [Concomitant]
     Active Substance: POTASSIUM CHLORIDE
  11. IBRUTINIB [Suspect]
     Active Substance: IBRUTINIB
     Indication: CHRONIC LYMPHOCYTIC LEUKAEMIA
     Route: 048
     Dates: start: 20141114, end: 20141128
  12. INEXIUM [Concomitant]
     Active Substance: ESOMEPRAZOLE
     Dates: start: 20140326
  13. BIONOLYTE [Concomitant]
     Active Substance: UNSPECIFIED INGREDIENT
     Dates: start: 20140919
  14. CIPROFLOXACIN. [Concomitant]
     Active Substance: CIPROFLOXACIN
     Dates: start: 20140331
  15. CLAIRYG [Concomitant]
     Active Substance: HUMAN IMMUNOGLOBULIN G
     Indication: NEUTROPENIA
     Route: 042
     Dates: start: 20140911, end: 20140911
  16. FORADIL [Concomitant]
     Active Substance: FORMOTEROL FUMARATE
     Route: 055
     Dates: start: 20141126
  17. ZELITREX [Concomitant]
     Active Substance: VALACYCLOVIR HYDROCHLORIDE
     Dosage: 500*2
     Dates: start: 20130114, end: 20141019
  18. IPRATROPIUM [Concomitant]
     Active Substance: IPRATROPIUM
     Route: 055
     Dates: start: 20140921
  19. AMIKACIN [Concomitant]
     Active Substance: AMIKACIN
     Dates: start: 20140919, end: 20140928
  20. IMOVANE [Concomitant]
     Active Substance: ZOPICLONE
     Dates: start: 20140920
  21. TIORFAN [Concomitant]
     Active Substance: RACECADOTRIL
     Dates: start: 20141202
  22. VANCOMYCIN [Concomitant]
     Active Substance: VANCOMYCIN
     Dates: start: 20141020
  23. FORTUM [Concomitant]
     Active Substance: CEFTAZIDIME
     Route: 042
     Dates: start: 20140919, end: 20140928
  24. ALPRAZOLAM. [Concomitant]
     Active Substance: ALPRAZOLAM
     Dates: start: 20140110, end: 20140110
  25. CLAIRYG [Concomitant]
     Active Substance: HUMAN IMMUNOGLOBULIN G
     Indication: NEUTROPENIA
     Route: 042
     Dates: start: 20140911, end: 20140911
  26. VENTOLIN [Concomitant]
     Active Substance: ALBUTEROL SULFATE
     Route: 050
     Dates: start: 20141027
  27. IBRUTINIB [Suspect]
     Active Substance: IBRUTINIB
     Indication: CHRONIC LYMPHOCYTIC LEUKAEMIA
     Route: 048
     Dates: start: 20141001, end: 2014
  28. BACTRIM [Concomitant]
     Active Substance: SULFAMETHOXAZOLE\TRIMETHOPRIM
     Indication: ANTI-INFECTIVE THERAPY
     Dates: start: 201303
  29. OROZAMUDOL [Concomitant]
     Active Substance: TRAMADOL
     Dates: start: 20140919
  30. BACTRIM [Concomitant]
     Active Substance: SULFAMETHOXAZOLE\TRIMETHOPRIM
     Dates: start: 20140325
  31. SPIRIVA [Concomitant]
     Active Substance: TIOTROPIUM BROMIDE MONOHYDRATE
     Dates: start: 20141126
  32. IBRUTINIB [Suspect]
     Active Substance: IBRUTINIB
     Indication: CHRONIC LYMPHOCYTIC LEUKAEMIA
     Route: 048
     Dates: start: 20140325, end: 20141205
  33. IBRUTINIB [Suspect]
     Active Substance: IBRUTINIB
     Indication: CHRONIC LYMPHOCYTIC LEUKAEMIA
     Route: 048
     Dates: start: 2014, end: 2014
  34. TERBUTALINE [Concomitant]
     Active Substance: TERBUTALINE
     Route: 055
     Dates: start: 20140921, end: 20140930
  35. ACUPAN [Concomitant]
     Active Substance: NEFOPAM HYDROCHLORIDE
     Dates: start: 20140920, end: 20141021
  36. CAMPATH [Concomitant]
     Active Substance: ALEMTUZUMAB
     Dates: start: 20140124
  37. POTASSIUM CHLORIDE. [Concomitant]
     Active Substance: POTASSIUM CHLORIDE
     Dates: start: 20140326
  38. PROFENID [Concomitant]
     Active Substance: KETOPROFEN
     Dates: start: 20141011
  39. LACTOBACILLUS [Concomitant]
     Active Substance: LACTOBACILLUS ACIDOPHILUS
     Dates: start: 20141104

REACTIONS (18)
  - Acute kidney injury [Unknown]
  - Tumour flare [Fatal]
  - Neutropenia [Recovered/Resolved]
  - Lymphoma transformation [Fatal]
  - Pyrexia [Unknown]
  - Off label use [Unknown]
  - White blood cell count increased [Recovered/Resolved]
  - Splenomegaly [Unknown]
  - Bronchopulmonary aspergillosis [Fatal]
  - Leukocytosis [Unknown]
  - Drug ineffective [Not Recovered/Not Resolved]
  - Lymphocytosis [Unknown]
  - Lung infection pseudomonal [Fatal]
  - Pyrexia [Unknown]
  - Lymphocyte count increased [Recovered/Resolved]
  - Lung infection [Recovered/Resolved]
  - Pneumonia [Not Recovered/Not Resolved]
  - Respiratory moniliasis [Fatal]

NARRATIVE: CASE EVENT DATE: 2014
